FAERS Safety Report 17759540 (Version 2)
Quarter: 2020Q2

REPORT INFORMATION
  Report Type: Report from Study
  Country: US (occurrence: US)
  Receive Date: 20200508
  Receipt Date: 20200610
  Transmission Date: 20200714
  Serious: Yes (Other)
  Sender: FDA-Public Use
  Company Number: NVSC2020US122944

PATIENT
  Age: 63 Year
  Sex: Male

DRUGS (1)
  1. ENTRESTO [Suspect]
     Active Substance: SACUBITRIL\VALSARTAN
     Indication: CARDIAC FAILURE CONGESTIVE
     Dosage: 1 DF (49/51 MG), BID
     Route: 048

REACTIONS (4)
  - COVID-19 [Unknown]
  - Weight decreased [Unknown]
  - Depressed mood [Unknown]
  - Stress [Unknown]

NARRATIVE: CASE EVENT DATE: 202001
